FAERS Safety Report 19745088 (Version 1)
Quarter: 2021Q3

REPORT INFORMATION
  Report Type: Spontaneous
  Country: US (occurrence: US)
  Receive Date: 20210824
  Receipt Date: 20210824
  Transmission Date: 20211014
  Serious: No
  Sender: FDA-Public Use
  Company Number: None

PATIENT
  Age: 53 Year
  Sex: Female
  Weight: 85.05 kg

DRUGS (7)
  1. MESALAMINE. [Concomitant]
     Active Substance: MESALAMINE
  2. MULTIVITAMIN [Concomitant]
     Active Substance: VITAMINS
  3. ATORAVASTATIN [Concomitant]
     Active Substance: ATORVASTATIN
  4. RYBELSUS [Suspect]
     Active Substance: SEMAGLUTIDE
     Indication: TYPE 2 DIABETES MELLITUS
     Dosage: ?          QUANTITY:1 TABLET(S);?
     Route: 048
     Dates: start: 20210724, end: 20210820
  5. FOLIC ACID. [Concomitant]
     Active Substance: FOLIC ACID
  6. VITAMIN D [Concomitant]
     Active Substance: VITAMIN D NOS
  7. ESCITALOPRAM [Concomitant]
     Active Substance: ESCITALOPRAM OXALATE

REACTIONS (3)
  - Product solubility abnormal [None]
  - Vomiting [None]
  - Product physical issue [None]

NARRATIVE: CASE EVENT DATE: 20210819
